FAERS Safety Report 4558603-X (Version None)
Quarter: 2005Q1

REPORT INFORMATION
  Report Type: 
  Country: None (occurrence: None)
  Receive Date: 20050121
  Receipt Date: 20050112
  Transmission Date: 20050727
  Serious: Yes (Other)
  Sender: FDA-Public Use
  Company Number: DE-ROCHE-392400

PATIENT
  Age: 33 Year
  Sex: Female
  Weight: 84 kg

DRUGS (2)
  1. RIBAVIRIN [Suspect]
     Route: 048
     Dates: start: 20030327
  2. PEG-INTERFERON ALFA 2A (RO 25-8310) [Concomitant]
     Route: 058
     Dates: start: 20030327

REACTIONS (1)
  - CONVULSION [None]
